FAERS Safety Report 7611792-2 (Version None)
Quarter: 2011Q3

REPORT INFORMATION
  Report Type: 
  Country: None (occurrence: None)
  Receive Date: 20110715
  Receipt Date: 20110708
  Transmission Date: 20111222
  Serious: Yes (Other)
  Sender: FDA-Public Use
  Company Number: JP-PFIZER INC-2011134539

PATIENT
  Age: 22 Year
  Sex: Female
  Weight: 66.5 kg

DRUGS (14)
  1. THYRADIN [Concomitant]
     Dosage: 7.5 UG, 1X/DAY
     Dates: start: 20100305
  2. HYDROXYPROGESTERONE [Concomitant]
     Dosage: 2.5 MG, 2X/DAY
     Route: 048
     Dates: start: 20090327, end: 20100810
  3. PROVERA [Concomitant]
     Indication: OVARIAN FAILURE
     Dosage: 5 MG, 1X/DAY
     Route: 048
     Dates: start: 20050805
  4. GENOTROPIN [Suspect]
     Indication: HYPOPITUITARISM
     Dosage: 0.2 MG, 1X/DAY
     Dates: start: 20100714, end: 20110216
  5. THYRADIN [Concomitant]
     Indication: HYPOTHYROIDISM
     Dosage: 5 UG, 2X/DAY
     Route: 048
     Dates: start: 20000623
  6. PREMARIN [Concomitant]
     Indication: OVARIAN FAILURE
     Dosage: 0.625 MG, 1X/DAY
     Route: 048
     Dates: start: 20030131, end: 20100810
  7. DIVIGEL [Concomitant]
     Dosage: UNK
     Route: 062
     Dates: start: 20100915
  8. GENOTROPIN [Suspect]
     Indication: GROWTH HORMONE DEFICIENCY
     Dosage: 0.8 MG, 1X/DAY
     Route: 058
     Dates: start: 20000623
  9. CORTRIL [Concomitant]
     Dosage: 20 MG, 1X/DAY
     Dates: start: 20090327
  10. ESTRADIOL [Concomitant]
     Dosage: UNK
     Route: 062
     Dates: start: 20100811, end: 20100914
  11. DESMOPRESSIN [Concomitant]
     Indication: DIABETES INSIPIDUS
     Dosage: 5 UG, 2X/DAY
     Route: 045
     Dates: start: 20000623
  12. CORTRIL [Concomitant]
     Indication: ADRENAL INSUFFICIENCY
     Dosage: 30 MG, 1X/DAY
     Route: 048
     Dates: start: 20000623
  13. ACETAMINOPHEN [Concomitant]
     Dosage: 200 MG, AS NEEDED
     Route: 048
     Dates: start: 20090626
  14. DESMOPRESSIN [Concomitant]
     Dosage: 5 UG, 4X/DAY

REACTIONS (2)
  - NEOPLASM RECURRENCE [None]
  - CRANIOPHARYNGIOMA [None]
